FAERS Safety Report 18890320 (Version 1)
Quarter: 2021Q1

REPORT INFORMATION
  Report Type: Spontaneous
  Country: US (occurrence: US)
  Receive Date: 20210214
  Receipt Date: 20210214
  Transmission Date: 20210420
  Serious: No
  Sender: FDA-Public Use
  Company Number: US-SA-2021SA044607

PATIENT
  Age: 25 Year
  Sex: Female

DRUGS (1)
  1. DUPIXENT [Suspect]
     Active Substance: DUPILUMAB
     Indication: NASAL POLYPS
     Dosage: DRUG INTERVAL DOSAGE : 2 WEEKS
     Dates: start: 20210115

REACTIONS (2)
  - Flushing [Unknown]
  - Headache [Unknown]

NARRATIVE: CASE EVENT DATE: 20210115
